FAERS Safety Report 8482857-0 (Version None)
Quarter: 2012Q3

REPORT INFORMATION
  Report Type: 
  Country: None (occurrence: None)
  Receive Date: 20120702
  Receipt Date: 20120622
  Transmission Date: 20120928
  Serious: Yes (Other)
  Sender: FDA-Public Use
  Company Number: CHPA2012PL013087

PATIENT
  Age: 13 Year
  Sex: Male

DRUGS (2)
  1. OTRIVIN [Suspect]
     Indication: RHINITIS
     Dosage: UNK, UNK
     Route: 045
     Dates: start: 20120612, end: 20120622
  2. ANTIBIOTICS [Concomitant]
     Dosage: UNK, UNK

REACTIONS (3)
  - SLEEP DISORDER [None]
  - URINARY RETENTION [None]
  - PSYCHOMOTOR HYPERACTIVITY [None]
